FAERS Safety Report 16423437 (Version 1)
Quarter: 2019Q2

REPORT INFORMATION
  Report Type: Spontaneous
  Country: US (occurrence: US)
  Receive Date: 20190612
  Receipt Date: 20190612
  Transmission Date: 20190711
  Serious: Yes (Death)
  Sender: FDA-Public Use
  Company Number: PHEH2019US024497

PATIENT
  Age: 26 Year
  Sex: Female
  Weight: 141.97 kg

DRUGS (1)
  1. VOLTAREN [Suspect]
     Active Substance: DICLOFENAC SODIUM
     Indication: PRODUCT USED FOR UNKNOWN INDICATION
     Dosage: 8 IU, Q2W
     Route: 048
     Dates: start: 201705

REACTIONS (2)
  - Maternal exposure during pregnancy [Unknown]
  - Headache [Fatal]

NARRATIVE: CASE EVENT DATE: 201805
